FAERS Safety Report 4577098-3 (Version None)
Quarter: 2005Q1

REPORT INFORMATION
  Report Type: 
  Country: None (occurrence: None)
  Receive Date: 20050210
  Receipt Date: 20050202
  Transmission Date: 20050727
  Serious: Yes (Death, Other)
  Sender: FDA-Public Use
  Company Number: FR-MERCK-0502USA00415

PATIENT
  Age: 14 Year
  Sex: Male

DRUGS (1)
  1. TIAMATE [Suspect]
     Indication: CORONARY ARTERY DISEASE
     Route: 065
     Dates: start: 19970101, end: 20000101

REACTIONS (6)
  - CARDIOMYOPATHY [None]
  - CIRCULATORY COLLAPSE [None]
  - ORTHOSTATIC HYPOTENSION [None]
  - SUDDEN CARDIAC DEATH [None]
  - SYNCOPE [None]
  - VENTRICULAR FIBRILLATION [None]
